FAERS Safety Report 8289117-1 (Version None)
Quarter: 2012Q2

REPORT INFORMATION
  Report Type: 
  Country: None (occurrence: None)
  Receive Date: 20120417
  Receipt Date: 20120409
  Transmission Date: 20120825
  Serious: Yes (Hospitalization)
  Sender: FDA-Public Use
  Company Number: JP-JNJFOC-20120400754

PATIENT
  Sex: Female
  Weight: 35 kg

DRUGS (17)
  1. ZOLPIDEM [Concomitant]
     Indication: INSOMNIA
     Route: 048
     Dates: start: 20111209
  2. GALANTAMINE HYDROBROMIDE [Suspect]
     Route: 048
     Dates: start: 20120102
  3. LANSOPRAZOLE [Concomitant]
     Indication: GASTRIC ULCER
     Route: 048
     Dates: start: 20120326
  4. GALANTAMINE HYDROBROMIDE [Suspect]
     Route: 048
     Dates: start: 20111107, end: 20111205
  5. INFLUENZA HA VACCINE [Concomitant]
     Indication: PROPHYLAXIS
     Route: 058
     Dates: start: 20111209, end: 20111209
  6. GALANTAMINE HYDROBROMIDE [Suspect]
     Indication: DEMENTIA ALZHEIMER'S TYPE
     Route: 048
     Dates: start: 20111205, end: 20120102
  7. AMLODIPINE BESYLATE [Concomitant]
     Indication: HYPERTENSION
     Route: 048
  8. ALPRAZOLAM [Concomitant]
     Indication: INSOMNIA
     Route: 048
  9. SELBEX [Concomitant]
     Indication: GASTRIC ULCER
     Route: 048
     Dates: start: 20120323
  10. TRANSAMINE CAP [Concomitant]
     Indication: GASTRIC ULCER
     Route: 042
     Dates: start: 20120331, end: 20120331
  11. UNKNOWN MEDICATION [Concomitant]
     Indication: GASTRIC ULCER
     Route: 041
     Dates: start: 20120331, end: 20120331
  12. SCOPOLAMINE [Concomitant]
     Indication: GASTRIC ULCER
     Route: 042
     Dates: start: 20120331, end: 20120331
  13. ADONA [Concomitant]
     Indication: GASTRIC ULCER
     Route: 042
     Dates: start: 20120331, end: 20120331
  14. FAMOTIDINE [Concomitant]
     Indication: GASTRIC ULCER
     Route: 042
     Dates: start: 20120331, end: 20120331
  15. ALLOID G [Concomitant]
     Indication: GASTRIC ULCER
     Route: 048
     Dates: start: 20120401
  16. TOKICLOR [Concomitant]
     Indication: ECZEMA
     Route: 048
     Dates: start: 20111214, end: 20111217
  17. SILECE [Concomitant]
     Route: 042
     Dates: start: 20120331, end: 20120331

REACTIONS (1)
  - GASTRIC ULCER [None]
